FAERS Safety Report 10027578 (Version 4)
Quarter: 2014Q3

REPORT INFORMATION
  Report Type: Spontaneous
  Country: US (occurrence: US)
  Receive Date: 20140321
  Receipt Date: 20140703
  Transmission Date: 20150326
  Serious: Yes (Hospitalization)
  Sender: FDA-Public Use
  Company Number: US-BAYER-2014-040167

PATIENT
  Age: 33 Year
  Sex: Female
  Weight: 58.96 kg

DRUGS (2)
  1. MIRENA [Suspect]
     Active Substance: LEVONORGESTREL
     Indication: CONTRACEPTION
     Dosage: 20 MCG/24HR, CONT
     Route: 015
     Dates: start: 20040122, end: 20060207
  2. NUVARING [Concomitant]
     Active Substance: ETHINYL ESTRADIOL\ETONOGESTREL
     Dosage: UNK
     Dates: start: 200502, end: 200504

REACTIONS (9)
  - Menorrhagia [None]
  - Back pain [None]
  - Anxiety [None]
  - Emotional distress [None]
  - Pain [None]
  - Uterine perforation [None]
  - Abdominal pain [None]
  - Scar [None]
  - Injury [None]

NARRATIVE: CASE EVENT DATE: 2004
